FAERS Safety Report 24980032 (Version 4)
Quarter: 2025Q2

REPORT INFORMATION
  Report Type: Spontaneous
  Country: US (occurrence: US)
  Receive Date: 20250218
  Receipt Date: 20250627
  Transmission Date: 20250716
  Serious: No
  Sender: BRISTOL-MYERS SQUIBB COMPANY
  Company Number: US-BRISTOL-MYERS SQUIBB COMPANY-2025-020666

PATIENT
  Age: 92 Year
  Sex: Female

DRUGS (4)
  1. REVLIMID [Suspect]
     Active Substance: LENALIDOMIDE
     Indication: Plasma cell myeloma
     Route: 048
  2. REVLIMID [Suspect]
     Active Substance: LENALIDOMIDE
     Route: 048
  3. REVLIMID [Suspect]
     Active Substance: LENALIDOMIDE
     Route: 048
  4. REVLIMID [Suspect]
     Active Substance: LENALIDOMIDE
     Route: 048

REACTIONS (11)
  - Diarrhoea [Unknown]
  - Rash macular [Unknown]
  - Discomfort [Unknown]
  - Dyspepsia [Unknown]
  - Off label use [Unknown]
  - Rash [Recovering/Resolving]
  - Gout [Unknown]
  - Nausea [Unknown]
  - Fatigue [Unknown]
  - Peripheral swelling [Unknown]
  - Rash pruritic [Unknown]
